FAERS Safety Report 21985711 (Version 2)
Quarter: 2023Q1

REPORT INFORMATION
  Report Type: Spontaneous
  Country: US (occurrence: US)
  Receive Date: 20230213
  Receipt Date: 20230214
  Transmission Date: 20230418
  Serious: No
  Sender: FDA-Public Use
  Company Number: US-002147023-NVSC2023US027556

PATIENT
  Sex: Male
  Weight: 136.05 kg

DRUGS (1)
  1. COSENTYX [Suspect]
     Active Substance: SECUKINUMAB
     Indication: Hidradenitis
     Dosage: 300 MG, QMO
     Route: 058
     Dates: start: 202210

REACTIONS (5)
  - Musculoskeletal discomfort [Unknown]
  - Hidradenitis [Unknown]
  - Condition aggravated [Unknown]
  - Wrong technique in device usage process [Recovered/Resolved]
  - Therapeutic product effect incomplete [Unknown]
